FAERS Safety Report 5350576-5 (Version None)
Quarter: 2007Q2

REPORT INFORMATION
  Report Type: 
  Country: None (occurrence: None)
  Receive Date: 20070608
  Receipt Date: 20070529
  Transmission Date: 20071010
  Serious: Yes (Death, Life-Threatening, Other)
  Sender: FDA-Public Use
  Company Number: GB-JNJFOC-20070507072

PATIENT
  Sex: Female
  Weight: 57 kg

DRUGS (5)
  1. INFLIXIMAB [Suspect]
     Indication: RHEUMATOID ARTHRITIS
  2. METHOTREXATE [Concomitant]
  3. ATENOLOL [Concomitant]
  4. COSARTAN [Concomitant]
  5. CO-PROXAMOL [Concomitant]

REACTIONS (1)
  - METASTATIC RENAL CELL CARCINOMA [None]
